FAERS Safety Report 5976071-8 (Version None)
Quarter: 2008Q4

REPORT INFORMATION
  Report Type: 
  Country: None (occurrence: None)
  Receive Date: 20081202
  Receipt Date: 20081121
  Transmission Date: 20090506
  Serious: Yes (Other)
  Sender: FDA-Public Use
  Company Number: US-ROCHE-596906

PATIENT
  Sex: Female
  Weight: 73 kg

DRUGS (3)
  1. PEG-INTERFERON A-2A (RO 25-8310) [Suspect]
     Indication: DRUG USE FOR UNKNOWN INDICATION
     Route: 065
     Dates: start: 20081001, end: 20081119
  2. RIBAVIRIN [Suspect]
     Indication: DRUG USE FOR UNKNOWN INDICATION
     Route: 065
     Dates: start: 20081001, end: 20081119
  3. ALLEGRA [Concomitant]
     Route: 048
     Dates: start: 20081118

REACTIONS (3)
  - HAEMOPTYSIS [None]
  - PLATELET COUNT DECREASED [None]
  - THROMBOSIS [None]
